FAERS Safety Report 14846040 (Version 2)
Quarter: 2018Q4

REPORT INFORMATION
  Report Type: Spontaneous
  Country: FR (occurrence: FR)
  Receive Date: 20180504
  Receipt Date: 20181127
  Transmission Date: 20190204
  Serious: Yes (Other)
  Sender: FDA-Public Use
  Company Number: FR-MERCK KGAA-2047187

PATIENT
  Age: 47 Year
  Sex: Female

DRUGS (1)
  1. EUTHYROX [Suspect]
     Active Substance: LEVOTHYROXINE SODIUM
     Indication: PRODUCT USED FOR UNKNOWN INDICATION
     Dates: start: 2017

REACTIONS (15)
  - Myalgia [None]
  - Fatigue [None]
  - Depression [None]
  - Loss of personal independence in daily activities [None]
  - Blood thyroid stimulating hormone increased [None]
  - Mental impairment [None]
  - Feeling abnormal [None]
  - Amnesia [None]
  - Affect lability [None]
  - Social avoidant behaviour [None]
  - Psychiatric symptom [None]
  - Dizziness [None]
  - Somnolence [None]
  - Alopecia [None]
  - Muscle spasms [None]

NARRATIVE: CASE EVENT DATE: 201708
